FAERS Safety Report 9452949 (Version 2)
Quarter: 2013Q3

REPORT INFORMATION
  Report Type: Spontaneous
  Country: GB (occurrence: GB)
  Receive Date: 20130812
  Receipt Date: 20130827
  Transmission Date: 20140515
  Serious: Yes (Hospitalization, Other)
  Sender: FDA-Public Use
  Company Number: GB-ASTELLAS-2013US008430

PATIENT
  Sex: 0

DRUGS (1)
  1. TARCEVA [Suspect]
     Indication: PRODUCT USED FOR UNKNOWN INDICATION
     Dosage: NG TUBE
     Route: 050

REACTIONS (2)
  - Dysphagia [Unknown]
  - Oesophageal neoplasm [Unknown]
